FAERS Safety Report 5596542-6 (Version None)
Quarter: 2008Q1

REPORT INFORMATION
  Report Type: 
  Country: None (occurrence: None)
  Receive Date: 20080118
  Receipt Date: 20080107
  Transmission Date: 20080703
  Serious: Yes (Other)
  Sender: FDA-Public Use
  Company Number: FR-PFIZER INC-2007091948

PATIENT
  Sex: Male
  Weight: 82 kg

DRUGS (1)
  1. CHANTIX [Suspect]
     Indication: SMOKING CESSATION THERAPY
     Dosage: DAILY DOSE:1.5MG-FREQ:TOTAL DAILY
     Route: 048
     Dates: start: 20070828, end: 20070902

REACTIONS (3)
  - BALANCE DISORDER [None]
  - DYSTONIA [None]
  - SYNCOPE [None]
